FAERS Safety Report 4965192-4 (Version None)
Quarter: 2006Q1

REPORT INFORMATION
  Report Type: 
  Country: None (occurrence: None)
  Receive Date: 20060201
  Receipt Date: 20051213
  Transmission Date: 20060701
  Serious: No
  Sender: FDA-Public Use
  Company Number: 2005PV005809

PATIENT
  Age: 58 Year
  Sex: Male
  Weight: 100.2449 kg

DRUGS (12)
  1. BYETTA [Suspect]
     Indication: DIABETES MELLITUS NON-INSULIN-DEPENDENT
     Dosage: SEE IMAGE
     Route: 058
     Dates: start: 20050901, end: 20051001
  2. BYETTA [Suspect]
     Indication: DIABETES MELLITUS NON-INSULIN-DEPENDENT
     Dosage: SEE IMAGE
     Route: 058
     Dates: start: 20051001, end: 20051101
  3. BYETTA [Suspect]
     Indication: DIABETES MELLITUS NON-INSULIN-DEPENDENT
     Dosage: SEE IMAGE
     Route: 058
     Dates: start: 20051209, end: 20051211
  4. AMARYL [Concomitant]
  5. ACTOS [Concomitant]
  6. COZAAR [Concomitant]
  7. NORVASC [Concomitant]
  8. SERZONE [Concomitant]
  9. LIPITOR [Concomitant]
  10. CENTRUM MULTIVITAMIN [Concomitant]
  11. ASPIRIN [Concomitant]
  12. FISH OIL [Concomitant]

REACTIONS (10)
  - ABDOMINAL DISTENSION [None]
  - DECREASED APPETITE [None]
  - DYSPEPSIA [None]
  - FEELING JITTERY [None]
  - HEADACHE [None]
  - HYPERHIDROSIS [None]
  - INSOMNIA [None]
  - NAUSEA [None]
  - PRURITUS [None]
  - WEIGHT DECREASED [None]
